FAERS Safety Report 7676852-9 (Version None)
Quarter: 2011Q3

REPORT INFORMATION
  Report Type: 
  Country: None (occurrence: None)
  Receive Date: 20110811
  Receipt Date: 20110808
  Transmission Date: 20111222
  Serious: Yes (Other)
  Sender: FDA-Public Use
  Company Number: DE-PFIZER INC-2011138163

PATIENT
  Age: 70 Year
  Sex: Male
  Weight: 80 kg

DRUGS (2)
  1. ATORVASTATIN CALCIUM [Suspect]
     Indication: CORONARY ARTERY DISEASE
     Dosage: 40 MG, 1X/DAY
     Route: 048
     Dates: start: 20110516, end: 20110501
  2. MARCUMAR [Concomitant]
     Indication: AORTIC VALVE REPLACEMENT
     Dosage: UNK

REACTIONS (7)
  - VISUAL IMPAIRMENT [None]
  - MUSCULAR WEAKNESS [None]
  - DYSPNOEA [None]
  - DIZZINESS [None]
  - MYALGIA [None]
  - COUGH [None]
  - ABDOMINAL PAIN [None]
